FAERS Safety Report 8410241-4 (Version None)
Quarter: 2012Q2

REPORT INFORMATION
  Report Type: 
  Country: None (occurrence: None)
  Receive Date: 20120605
  Receipt Date: 20120531
  Transmission Date: 20120825
  Serious: Yes (Death, Hospitalization, Other)
  Sender: FDA-Public Use
  Company Number: PHHY2012BR047297

PATIENT
  Sex: Male

DRUGS (3)
  1. EXELON [Suspect]
     Dosage: EXELON TTS 18MG/10CM2
     Route: 062
  2. PROLOPA [Concomitant]
     Indication: PARKINSON'S DISEASE
  3. EXELON [Suspect]
     Dosage: EXELON TTS 9MG/5CM2
     Route: 062

REACTIONS (5)
  - NOSOCOMIAL INFECTION [None]
  - CARDIAC ARREST [None]
  - PARKINSON'S DISEASE [None]
  - SPINAL FRACTURE [None]
  - PELVIC FRACTURE [None]
